FAERS Safety Report 18997783 (Version 1)
Quarter: 2021Q1

REPORT INFORMATION
  Report Type: Spontaneous
  Country: RS (occurrence: RS)
  Receive Date: 20210311
  Receipt Date: 20210311
  Transmission Date: 20210420
  Serious: Yes (Hospitalization)
  Sender: FDA-Public Use
  Company Number: RS-JNJFOC-20210310147

PATIENT
  Age: 29 Year
  Sex: Male

DRUGS (7)
  1. RISPOLEPT CONSTA [Suspect]
     Active Substance: RISPERIDONE
  2. RISPOLEPT CONSTA [Suspect]
     Active Substance: RISPERIDONE
  3. RISPOLEPT CONSTA [Suspect]
     Active Substance: RISPERIDONE
  4. BENSEDIN [Concomitant]
     Active Substance: DIAZEPAM
     Dosage: 1, 1, 1
     Route: 048
  5. LEPONEX [Concomitant]
     Active Substance: CLOZAPINE
     Dosage: 0, 0, 1 1/2
     Route: 048
  6. RISPOLEPT CONSTA [Suspect]
     Active Substance: RISPERIDONE
     Indication: SCHIZOPHRENIA
     Route: 030
  7. TEGRETOL [Concomitant]
     Active Substance: CARBAMAZEPINE
     Dosage: 1/4, 0, 1/2
     Route: 048

REACTIONS (3)
  - Schizophrenia [Recovered/Resolved]
  - Sexual dysfunction [Recovered/Resolved]
  - Alcohol abuse [Recovered/Resolved]
